FAERS Safety Report 21270756 (Version 1)
Quarter: 2022Q3

REPORT INFORMATION
  Report Type: Report from Study
  Country: CA (occurrence: CA)
  Receive Date: 20220830
  Receipt Date: 20220830
  Transmission Date: 20221027
  Serious: Yes (Other)
  Sender: FDA-Public Use
  Company Number: CA-BAYER-2022A118321

PATIENT
  Age: 41 Year
  Sex: Female

DRUGS (13)
  1. CIPROFLOXACIN [Suspect]
     Active Substance: CIPROFLOXACIN
  2. OMALIZUMAB [Suspect]
     Active Substance: OMALIZUMAB
     Indication: Asthma
     Dosage: 375 MG
     Route: 058
  3. PREDNISONE [Suspect]
     Active Substance: PREDNISONE
     Indication: Rash
     Dosage: 30 MG
  4. PREDNISONE [Suspect]
     Active Substance: PREDNISONE
     Indication: Pruritus
     Dosage: UNK
  5. PREDNISONE [Suspect]
     Active Substance: PREDNISONE
     Indication: Chest pain
     Dosage: 50 MG
  6. PREDNISONE [Suspect]
     Active Substance: PREDNISONE
     Indication: Asthma
  7. CETIRIZINE HYDROCHLORIDE [Concomitant]
     Active Substance: CETIRIZINE HYDROCHLORIDE
     Indication: Product used for unknown indication
  8. ALBUTEROL [Concomitant]
     Active Substance: ALBUTEROL
     Indication: Product used for unknown indication
  9. BUDESONIDE [Concomitant]
     Active Substance: BUDESONIDE
     Indication: Product used for unknown indication
  10. FORMOTEROL FUMARATE [Concomitant]
     Active Substance: FORMOTEROL FUMARATE
     Indication: Product used for unknown indication
  11. SINGULAIR [Concomitant]
     Active Substance: MONTELUKAST SODIUM
     Indication: Product used for unknown indication
  12. ADVAIR HFA [Concomitant]
     Active Substance: FLUTICASONE PROPIONATE\SALMETEROL XINAFOATE
     Indication: Product used for unknown indication
  13. SPIRIVA [Concomitant]
     Active Substance: TIOTROPIUM BROMIDE MONOHYDRATE
     Indication: Product used for unknown indication

REACTIONS (44)
  - Alopecia [Recovered/Resolved]
  - Headache [Recovered/Resolved]
  - Heart rate increased [Recovered/Resolved]
  - Pruritus [Recovered/Resolved]
  - Arthralgia [Recovered/Resolved]
  - Swelling [Recovered/Resolved]
  - Product availability issue [Recovered/Resolved]
  - Hypoaesthesia [Recovered/Resolved]
  - Enterobiasis [Recovered/Resolved]
  - Product dose omission issue [Recovered/Resolved]
  - Dysuria [Recovered/Resolved]
  - Drug hypersensitivity [Recovered/Resolved]
  - Oropharyngeal pain [Recovered/Resolved]
  - Injection site eczema [Recovered/Resolved]
  - Food allergy [Recovered/Resolved]
  - Chest pain [Recovered/Resolved]
  - Asthma [Recovered/Resolved]
  - Pharyngitis streptococcal [Recovered/Resolved]
  - Cystitis [Recovered/Resolved]
  - Sensitivity to weather change [Recovered/Resolved]
  - COVID-19 [Recovered/Resolved]
  - Obstructive airways disorder [Recovered/Resolved]
  - Chest discomfort [Recovered/Resolved]
  - Fatigue [Recovered/Resolved]
  - Urinary tract infection [Recovered/Resolved]
  - Upper respiratory tract infection [Recovered/Resolved]
  - Pollakiuria [Recovered/Resolved]
  - Perfume sensitivity [Recovered/Resolved]
  - Dyspnoea [Recovered/Resolved]
  - Seasonal allergy [Recovered/Resolved]
  - Dust allergy [Recovered/Resolved]
  - Forced expiratory volume decreased [Recovered/Resolved]
  - Skin lesion [Recovered/Resolved]
  - Pyrexia [Recovered/Resolved]
  - Eczema [Recovered/Resolved]
  - Hypertension [Recovered/Resolved]
  - Pain [Recovered/Resolved]
  - Respiratory disorder [Recovered/Resolved]
  - Rash [Recovered/Resolved]
  - Blood glucose increased [Recovered/Resolved]
  - Inflammation [Recovered/Resolved]
  - Oral herpes [Recovered/Resolved]
  - Haemoptysis [Recovered/Resolved]
  - Renal impairment [Recovered/Resolved]
